FAERS Safety Report 11152081 (Version 1)
Quarter: 2015Q2

REPORT INFORMATION
  Report Type: Spontaneous
  Country: None (occurrence: None)
  Receive Date: 20150529
  Receipt Date: 20150529
  Transmission Date: 20150821
  Serious: No
  Sender: FDA-Public Use
  Company Number: None

PATIENT
  Age: 26 Year
  Weight: 68.04 kg

DRUGS (1)
  1. BUPROPRION SR [Suspect]
     Active Substance: BUPROPION
     Indication: DRUG THERAPY
     Dosage: 2 PILLS ONCE DAILY TAKEN BY MOUTH
     Route: 048

REACTIONS (4)
  - Withdrawal syndrome [None]
  - Product substitution issue [None]
  - Depression [None]
  - Drug ineffective [None]

NARRATIVE: CASE EVENT DATE: 20150501
